FAERS Safety Report 6545505-2 (Version None)
Quarter: 2010Q1

REPORT INFORMATION
  Report Type: 
  Country: None (occurrence: None)
  Receive Date: 20100121
  Receipt Date: 20100113
  Transmission Date: 20100710
  Serious: Yes (Other)
  Sender: FDA-Public Use
  Company Number: DE-PFIZER INC-2010004671

PATIENT
  Age: 40 Year
  Sex: Male

DRUGS (2)
  1. SORTIS [Suspect]
     Indication: BLOOD CHOLESTEROL INCREASED
     Dosage: 20 MG, 1X/DAY
     Dates: start: 20050101
  2. SORTIS [Suspect]
     Indication: TYPE IIA HYPERLIPIDAEMIA

REACTIONS (2)
  - MUSCULOSKELETAL DISCOMFORT [None]
  - TENDONITIS [None]
